FAERS Safety Report 14843094 (Version 1)
Quarter: 2018Q2

REPORT INFORMATION
  Report Type: Spontaneous
  Country: FR (occurrence: FR)
  Receive Date: 20180503
  Receipt Date: 20180503
  Transmission Date: 20180711
  Serious: Yes (Other)
  Sender: FDA-Public Use
  Company Number: FR-ASTRAZENECA-2018SE57848

PATIENT
  Age: 64 Year
  Sex: Male

DRUGS (2)
  1. KOMBOGLYZE [Suspect]
     Active Substance: METFORMIN HYDROCHLORIDE\SAXAGLIPTIN
     Indication: DIABETES MELLITUS
     Route: 048
     Dates: start: 20160201, end: 20180406
  2. NABUCOX [Suspect]
     Active Substance: NABUMETONE
     Indication: ARTHRALGIA
     Route: 048

REACTIONS (2)
  - Hyperlipasaemia [Not Recovered/Not Resolved]
  - Abdominal pain upper [Recovered/Resolved]

NARRATIVE: CASE EVENT DATE: 20180404
